FAERS Safety Report 9784481 (Version 1)
Quarter: 2013Q4

REPORT INFORMATION
  Report Type: Spontaneous
  Country: CA (occurrence: CA)
  Receive Date: 20131226
  Receipt Date: 20131226
  Transmission Date: 20140711
  Serious: Yes (Other)
  Sender: FDA-Public Use
  Company Number: CA-BAXTER-2013BAX051406

PATIENT
  Age: 7 Month
  Sex: Female
  Weight: 6 kg

DRUGS (2)
  1. GAMMAGARD S/D 10G [Suspect]
     Indication: PRODUCT USED FOR UNKNOWN INDICATION
     Route: 042
  2. GAMUNEX [Suspect]
     Indication: PRODUCT USED FOR UNKNOWN INDICATION
     Route: 042

REACTIONS (3)
  - Blood urine present [Unknown]
  - Haemoglobin decreased [Unknown]
  - Coombs direct test positive [Unknown]
